FAERS Safety Report 8496508-2 (Version None)
Quarter: 2012Q3

REPORT INFORMATION
  Report Type: 
  Country: None (occurrence: None)
  Receive Date: 20120709
  Receipt Date: 20120702
  Transmission Date: 20120928
  Serious: Yes (Other)
  Sender: FDA-Public Use
  Company Number: US-TEVA-342018USA

PATIENT
  Sex: Male

DRUGS (8)
  1. GUAIFENESIN [Concomitant]
     Indication: PRODUCTIVE COUGH
     Dosage: 1 TABLET
  2. DIAZEPAM [Concomitant]
     Indication: ANXIETY
     Route: 048
  3. PROAIR HFA [Suspect]
     Indication: ASTHMA
  4. CELECOXIB [Concomitant]
     Indication: ARTHRITIS
     Route: 048
  5. LANSOPRAZOLE [Concomitant]
     Indication: GASTROOESOPHAGEAL REFLUX DISEASE
     Route: 048
  6. VITAMIN D [Concomitant]
     Indication: SUPPLEMENTATION THERAPY
  7. FLUTICASONE PROPIONATE [Concomitant]
     Indication: RHINITIS ALLERGIC
  8. AZELASTINE HCL [Concomitant]
     Indication: HYPERSENSITIVITY

REACTIONS (2)
  - BRONCHOSPASM PARADOXICAL [None]
  - CHEST DISCOMFORT [None]
